FAERS Safety Report 13384342 (Version 3)
Quarter: 2019Q4

REPORT INFORMATION
  Report Type: Spontaneous
  Country: PL (occurrence: PL)
  Receive Date: 20170329
  Receipt Date: 20191230
  Transmission Date: 20200122
  Serious: Yes (Hospitalization, Other)
  Sender: FDA-Public Use
  Company Number: PL-MYLANLABS-2017M1018732

PATIENT
  Age: 56 Year
  Sex: Female

DRUGS (17)
  1. SERTRALINE [Interacting]
     Active Substance: SERTRALINE HYDROCHLORIDE
     Dosage: 100 MG, QD, IN THE MORNING
  2. TRAMADOL. [Interacting]
     Active Substance: TRAMADOL
     Indication: PAIN
  3. CIPROFLOXACIN. [Suspect]
     Active Substance: CIPROFLOXACIN
     Indication: BRONCHITIS
     Dosage: 1000 MILLIGRAM, QD
     Route: 048
  4. SERTRALINE [Interacting]
     Active Substance: SERTRALINE HYDROCHLORIDE
     Dosage: 100 MILLIGRAM, QD
     Route: 065
  5. OMEPRAZOLE. [Suspect]
     Active Substance: OMEPRAZOLE
     Indication: SPINAL PAIN
     Dosage: 40 MILLIGRAM, QD
     Route: 065
  6. KETOPROFEN. [Suspect]
     Active Substance: KETOPROFEN
     Indication: PAIN
     Dosage: 900 MILLIGRAM, QD
     Route: 048
  7. FLUOXETINE [Interacting]
     Active Substance: FLUOXETINE HYDROCHLORIDE
     Indication: DEPRESSION
     Dosage: 40 MG, UNK
     Route: 065
  8. INDAPAMIDE. [Interacting]
     Active Substance: INDAPAMIDE
     Indication: HYPERTENSION
     Dosage: 1.5 MG, QD, SR
     Route: 065
  9. HYDROXYZINE [Interacting]
     Active Substance: HYDROXYZINE HYDROCHLORIDE
     Indication: INITIAL INSOMNIA
     Dosage: 25 MG, QD IN THE EVENING
     Route: 065
  10. CELECOXIB. [Suspect]
     Active Substance: CELECOXIB
     Indication: BACK PAIN
     Dosage: 400 MILLIGRAM, QD
     Route: 065
  11. OMEPRAZOLE. [Suspect]
     Active Substance: OMEPRAZOLE
     Indication: BACK PAIN
  12. SERTRALINE [Interacting]
     Active Substance: SERTRALINE HYDROCHLORIDE
     Indication: DEPRESSION
     Dosage: 25 MG, UNK
     Route: 065
  13. TRAZODONE [Interacting]
     Active Substance: TRAZODONE HYDROCHLORIDE
     Indication: INSOMNIA
     Dosage: 75 MG, BEFORE GOING TO SLEEP
     Route: 065
  14. TRAMADOL. [Interacting]
     Active Substance: TRAMADOL
     Indication: ARTHRALGIA
     Dosage: 300 MILLIGRAM, QD
     Route: 065
  15. PARACETAMOL [Concomitant]
     Active Substance: ACETAMINOPHEN
     Indication: PAIN
     Dosage: 2600 MG, QD
  16. PARACETAMOL [Suspect]
     Active Substance: ACETAMINOPHEN
     Indication: ARTHRALGIA
     Dosage: 2600 MILLIGRAM, QD
     Route: 065
  17. ENALAPRIL MALEATE. [Suspect]
     Active Substance: ENALAPRIL MALEATE
     Indication: HYPERTENSION
     Dosage: 20 MILLIGRAM, QD
     Route: 065

REACTIONS (11)
  - Serotonin syndrome [Unknown]
  - Pain [Recovered/Resolved]
  - Drug ineffective [Unknown]
  - Hypophagia [Recovered/Resolved]
  - Iron deficiency [Recovered/Resolved]
  - Burning mouth syndrome [Recovered/Resolved]
  - Upper gastrointestinal haemorrhage [Unknown]
  - Bronchitis [Unknown]
  - Drug interaction [Unknown]
  - Oral discomfort [Recovered/Resolved]
  - Multiple drug therapy [Unknown]
